FAERS Safety Report 24762621 (Version 2)
Quarter: 2025Q1

REPORT INFORMATION
  Report Type: Spontaneous
  Country: US (occurrence: US)
  Receive Date: 20241221
  Receipt Date: 20250317
  Transmission Date: 20250408
  Serious: No
  Sender: SANOFI AVENTIS
  Company Number: US-SA-2024SA375009

PATIENT
  Age: 53 Year
  Sex: Female
  Weight: 92.73 kg

DRUGS (5)
  1. KEVZARA [Suspect]
     Active Substance: SARILUMAB
     Indication: Polymyalgia rheumatica
     Dosage: 200 MG, QOW
     Route: 058
     Dates: start: 20240912
  2. VITAMIN D3 [Concomitant]
     Active Substance: CHOLECALCIFEROL
  3. MAGNESIUM [Concomitant]
     Active Substance: MAGNESIUM
  4. IRON [Concomitant]
     Active Substance: IRON
  5. ASPIRIN [Concomitant]
     Active Substance: ASPIRIN

REACTIONS (5)
  - Dysphonia [Unknown]
  - Limb injury [Recovering/Resolving]
  - Arthralgia [Recovering/Resolving]
  - Therapeutic response decreased [Unknown]
  - Nasopharyngitis [Unknown]

NARRATIVE: CASE EVENT DATE: 20240101
